FAERS Safety Report 25034937 (Version 2)
Quarter: 2025Q1

REPORT INFORMATION
  Report Type: Spontaneous
  Country: JP (occurrence: JP)
  Receive Date: 20250304
  Receipt Date: 20250317
  Transmission Date: 20250409
  Serious: Yes (Hospitalization, Other)
  Sender: GILEAD
  Company Number: JP-GILEAD-2025-0703820

PATIENT
  Age: 6 Decade
  Sex: Female

DRUGS (2)
  1. TRODELVY [Suspect]
     Active Substance: SACITUZUMAB GOVITECAN-HZIY
     Indication: Triple negative breast cancer
     Route: 065
  2. TRODELVY [Suspect]
     Active Substance: SACITUZUMAB GOVITECAN-HZIY
     Route: 065

REACTIONS (5)
  - Malaise [Not Recovered/Not Resolved]
  - Neutrophil count decreased [Unknown]
  - Alopecia [Unknown]
  - Diarrhoea [Unknown]
  - Fatigue [Unknown]
